FAERS Safety Report 15059256 (Version 1)
Quarter: 2018Q2

REPORT INFORMATION
  Report Type: Spontaneous
  Country: US (occurrence: US)
  Receive Date: 20180625
  Receipt Date: 20180625
  Transmission Date: 20180711
  Serious: No
  Sender: FDA-Public Use
  Company Number: US-009507513-1806USA009334

PATIENT
  Age: 15 Year
  Sex: Female

DRUGS (8)
  1. SOMATROPIN. [Concomitant]
     Active Substance: SOMATROPIN
  2. PEGINTRON [Suspect]
     Active Substance: PEGINTERFERON ALFA-2B
     Indication: BRAIN NEOPLASM
     Dosage: 40 MICROGRAM, EVERY 7 DAYS
     Route: 058
     Dates: start: 201304
  3. VASOPRESSIN. [Concomitant]
     Active Substance: VASOPRESSIN
  4. SYNTHROID [Concomitant]
     Active Substance: LEVOTHYROXINE SODIUM
  5. HYDROCORTISONE. [Concomitant]
     Active Substance: HYDROCORTISONE
  6. INSULIN [Concomitant]
     Active Substance: INSULIN NOS
  7. ZOLOFT [Concomitant]
     Active Substance: SERTRALINE HYDROCHLORIDE
  8. PEGINTRON [Suspect]
     Active Substance: PEGINTERFERON ALFA-2B
     Dosage: 50 MICROGRAM, EVERY 7 DAYS
     Route: 058
     Dates: start: 2015

REACTIONS (5)
  - Product availability issue [Unknown]
  - No adverse event [Unknown]
  - Drug dose omission [Unknown]
  - Product use in unapproved indication [Unknown]
  - Therapeutic response unexpected [Unknown]

NARRATIVE: CASE EVENT DATE: 201304
